FAERS Safety Report 7432592-2 (Version None)
Quarter: 2011Q2

REPORT INFORMATION
  Report Type: 
  Country: None (occurrence: None)
  Receive Date: 20110422
  Receipt Date: 20110412
  Transmission Date: 20111010
  Serious: No
  Sender: FDA-Public Use
  Company Number: US-B.I. PHARMACEUTICALS,INC./RIDGEFIELD-2011-BP-08741BP

PATIENT
  Sex: Female

DRUGS (2)
  1. PRADAXA [Suspect]
     Indication: ATRIAL FIBRILLATION
     Dosage: 300 MG
     Route: 048
     Dates: start: 20110211, end: 20110324
  2. HYDRALAZINE HCL [Suspect]
     Dates: start: 20110204, end: 20110219

REACTIONS (7)
  - ODYNOPHAGIA [None]
  - ERUCTATION [None]
  - FLATULENCE [None]
  - OESOPHAGEAL PAIN [None]
  - HYPERSENSITIVITY [None]
  - DYSPEPSIA [None]
  - ABDOMINAL PAIN [None]
